FAERS Safety Report 5933792-0 (Version None)
Quarter: 2008Q4

REPORT INFORMATION
  Report Type: 
  Country: None (occurrence: None)
  Receive Date: 20081024
  Receipt Date: 20081013
  Transmission Date: 20090506
  Serious: Yes (Death, Other)
  Sender: FDA-Public Use
  Company Number: GXKR2008GB05911

PATIENT
  Age: 20 Year
  Sex: Male

DRUGS (7)
  1. DIAZEPAM [Suspect]
     Indication: ANXIETY
  2. TRAMADOL HCL [Suspect]
  3. DURAGESIC-100 [Suspect]
     Dosage: 100 UG, QH, TRANSDERMAL
     Route: 062
  4. CHLORPROMAZINE [Concomitant]
  5. ALCOHOL (ETHANOL) [Concomitant]
  6. CANNABIS (CANNABIS, CANNABIS SATIVA) [Concomitant]
  7. METHYLENEDIOXYMETHAMPHETAMINE (METHYLENEDIOXYMETHAMPHETAMINE) [Concomitant]

REACTIONS (8)
  - DEPRESSED LEVEL OF CONSCIOUSNESS [None]
  - DRUG INTERACTION [None]
  - INTENTIONAL DRUG MISUSE [None]
  - LACERATION [None]
  - MULTIPLE DRUG OVERDOSE [None]
  - PNEUMONIA BACTERIAL [None]
  - RESPIRATORY DEPRESSION [None]
  - SELF INJURIOUS BEHAVIOUR [None]
